FAERS Safety Report 25499831 (Version 2)
Quarter: 2025Q3

REPORT INFORMATION
  Report Type: Spontaneous
  Country: US (occurrence: US)
  Receive Date: 20250701
  Receipt Date: 20250714
  Transmission Date: 20251020
  Serious: No
  Sender: PFIZER
  Company Number: US-PFIZER INC-202500130438

PATIENT
  Age: 58 Year
  Sex: Female

DRUGS (2)
  1. LORBRENA [Suspect]
     Active Substance: LORLATINIB
     Dates: start: 20250527, end: 20250624
  2. LORBRENA [Suspect]
     Active Substance: LORLATINIB

REACTIONS (6)
  - Insomnia [Unknown]
  - Swelling face [Unknown]
  - Eye swelling [Unknown]
  - Slow speech [Unknown]
  - Disturbance in attention [Unknown]
  - Memory impairment [Unknown]
